FAERS Safety Report 18855100 (Version 2)
Quarter: 2021Q1

REPORT INFORMATION
  Report Type: Spontaneous
  Country: CN (occurrence: CN)
  Receive Date: 20210205
  Receipt Date: 20210205
  Transmission Date: 20210420
  Serious: Yes (Hospitalization)
  Sender: FDA-Public Use
  Company Number: CN-009507513-2102CHN001568

PATIENT
  Age: 69 Year
  Sex: Male
  Weight: 65 kg

DRUGS (4)
  1. PEMETREXED DISODIUM [Suspect]
     Active Substance: PEMETREXED DISODIUM
     Indication: LUNG ADENOCARCINOMA
     Dosage: 0.7G, ONCE A DAY
     Route: 041
     Dates: start: 20210105, end: 20210105
  2. SODIUM CHLORIDE. [Concomitant]
     Active Substance: SODIUM CHLORIDE
     Dosage: 100 ML, ONCE A DAY
     Dates: start: 20210105, end: 20210105
  3. KEYTRUDA [Suspect]
     Active Substance: PEMBROLIZUMAB
     Indication: LUNG ADENOCARCINOMA
     Dosage: 200 MG, ONCE A DAY
     Route: 041
     Dates: start: 20210105, end: 20210105
  4. SODIUM CHLORIDE. [Concomitant]
     Active Substance: SODIUM CHLORIDE
     Indication: LUNG ADENOCARCINOMA
     Dosage: 250 ML, ONCE A DAY
     Route: 041
     Dates: start: 20210105, end: 20210105

REACTIONS (5)
  - Palpitations [Unknown]
  - Flushing [Unknown]
  - Rash pruritic [Recovering/Resolving]
  - Scab [Recovering/Resolving]
  - Dyspnoea exertional [Unknown]

NARRATIVE: CASE EVENT DATE: 202101
